FAERS Safety Report 5922235-9 (Version None)
Quarter: 2008Q4

REPORT INFORMATION
  Report Type: 
  Country: None (occurrence: None)
  Receive Date: 20081015
  Receipt Date: 20081001
  Transmission Date: 20090506
  Serious: Yes (Hospitalization)
  Sender: FDA-Public Use
  Company Number: 20085425

PATIENT
  Sex: Male

DRUGS (7)
  1. LIORESAL [Suspect]
     Indication: MUSCLE SPASTICITY
     Dosage: 247 MCG, DAILY, INTRATHECAL
     Route: 037
  2. MULTI-VITAMIN [Concomitant]
  3. PERI-COLACE [Concomitant]
  4. SENNA [Concomitant]
  5. LOVAZA [Concomitant]
  6. MIRALAX [Concomitant]
  7. PRUNE JUICE MIXTURE [Concomitant]

REACTIONS (15)
  - ABDOMINAL PAIN [None]
  - AGITATION [None]
  - CATHETER RELATED COMPLICATION [None]
  - CONDITION AGGRAVATED [None]
  - DECUBITUS ULCER [None]
  - DRUG INEFFECTIVE [None]
  - DRUG WITHDRAWAL SYNDROME [None]
  - HYPERTENSION [None]
  - INTENTIONAL SELF-INJURY [None]
  - IRRITABILITY [None]
  - JOINT RANGE OF MOTION DECREASED [None]
  - MUSCLE SPASTICITY [None]
  - POSTURING [None]
  - TACHYCARDIA [None]
  - URINE OUTPUT DECREASED [None]
